FAERS Safety Report 10016833 (Version 2)
Quarter: 2014Q2

REPORT INFORMATION
  Report Type: Spontaneous
  Country: PT (occurrence: PT)
  Receive Date: 20140318
  Receipt Date: 20140604
  Transmission Date: 20141212
  Serious: Yes (Other)
  Sender: FDA-Public Use
  Company Number: PT-ROCHE-1362871

PATIENT
  Age: 69 Year
  Sex: 0

DRUGS (6)
  1. TRASTUZUMAB [Suspect]
     Indication: BREAST CANCER METASTATIC
     Route: 042
  2. TRASTUZUMAB [Suspect]
     Indication: METASTASES TO BONE
     Route: 058
  3. TRASTUZUMAB [Suspect]
     Indication: METASTASES TO LIVER
  4. TRASTUZUMAB [Suspect]
     Indication: METASTASES TO LUNG
  5. CAELYX [Concomitant]
  6. DENOSUMAB [Concomitant]

REACTIONS (4)
  - Palmar-plantar erythrodysaesthesia syndrome [Unknown]
  - Skin ulcer [Unknown]
  - Skin induration [Unknown]
  - Therapeutic response decreased [Unknown]
